FAERS Safety Report 25423383 (Version 1)
Quarter: 2025Q2

REPORT INFORMATION
  Report Type: Report from Study
  Country: US (occurrence: US)
  Receive Date: 20250611
  Receipt Date: 20250611
  Transmission Date: 20250717
  Serious: Yes (Hospitalization)
  Sender: ABBVIE
  Company Number: US-ABBVIE-6319453

PATIENT
  Sex: Male

DRUGS (1)
  1. VENCLEXTA [Suspect]
     Active Substance: VENETOCLAX
     Indication: Plasma cell myeloma
     Route: 048
     Dates: start: 202406

REACTIONS (2)
  - Chest pain [Unknown]
  - Multiple allergies [Unknown]
